FAERS Safety Report 9702651 (Version 1)
Quarter: 2013Q4

REPORT INFORMATION
  Report Type: Report from Study
  Country: DE (occurrence: DE)
  Receive Date: 20131121
  Receipt Date: 20131121
  Transmission Date: 20140711
  Serious: Yes (Hospitalization)
  Sender: FDA-Public Use
  Company Number: DE-ABBVIE-13P-062-1170034-00

PATIENT
  Sex: Male
  Weight: 138 kg

DRUGS (1)
  1. ZEMPLAR [Suspect]
     Indication: RENAL FAILURE

REACTIONS (2)
  - Arteriovenous fistula site complication [Recovered/Resolved]
  - Post procedural haematoma [Recovered/Resolved]
